FAERS Safety Report 17911660 (Version 1)
Quarter: 2020Q2

REPORT INFORMATION
  Report Type: Spontaneous
  Country: US (occurrence: US)
  Receive Date: 20200618
  Receipt Date: 20200618
  Transmission Date: 20200714
  Serious: No
  Sender: FDA-Public Use
  Company Number: US-PFIZER INC-2020235137

PATIENT
  Age: 64 Year
  Sex: Female
  Weight: 131 kg

DRUGS (2)
  1. TAXOL [Concomitant]
     Active Substance: PACLITAXEL
     Indication: BREAST CANCER FEMALE
     Dosage: UNK
     Dates: start: 2018, end: 2019
  2. IBRANCE [Suspect]
     Active Substance: PALBOCICLIB
     Indication: BREAST CANCER METASTATIC
     Dosage: 125 MG, CYCLIC[DAILY FOR 21 DAYS ON AND 7 DAYS OFF ]
     Route: 048
     Dates: start: 2019

REACTIONS (4)
  - Hypoaesthesia [Unknown]
  - Condition aggravated [Unknown]
  - Product dose omission [Unknown]
  - Herpes zoster [Unknown]

NARRATIVE: CASE EVENT DATE: 202004
